FAERS Safety Report 9159877 (Version 4)
Quarter: 2013Q3

REPORT INFORMATION
  Report Type: Spontaneous
  Country: US (occurrence: US)
  Receive Date: 20130313
  Receipt Date: 20130906
  Transmission Date: 20140515
  Serious: Yes (Death, Other)
  Sender: FDA-Public Use
  Company Number: US-PFIZER INC-2013081890

PATIENT
  Age: 73 Year
  Sex: Female
  Weight: 37.64 kg

DRUGS (16)
  1. REVATIO [Suspect]
     Indication: PULMONARY HYPERTENSION
     Dosage: 20 MG, 3X/DAY
     Route: 048
     Dates: start: 201201
  2. OXYGEN [Concomitant]
     Dosage: 3 LITERS PER MINUTES CONTINUOUS DURING THE DAY AND 4 LPM CONTINUOUS AT NIGHT
     Route: 045
     Dates: start: 20120605
  3. MARINOL [Concomitant]
     Dosage: 5 MG, 2X/DAY
     Route: 048
     Dates: start: 20121204
  4. LETAIRIS [Concomitant]
     Dosage: 10 MG, 1X/DAY
     Route: 048
     Dates: start: 20120605
  5. LISINOPRIL [Concomitant]
     Dosage: 40 MG, UNK
     Route: 048
     Dates: start: 20110526
  6. AMITRIPTYLINE HCL [Concomitant]
     Dosage: 100 MG, UNK
     Route: 048
     Dates: start: 20110811
  7. CARISOPRODOL [Concomitant]
     Dosage: 350 MG, UNK
     Route: 048
     Dates: start: 20120115
  8. TRAMADOL HCL [Concomitant]
     Dosage: 50 MG, UNK
     Route: 048
     Dates: start: 20111117
  9. SERTRALINE HCL [Concomitant]
     Dosage: 100 MG, UNK
     Route: 048
     Dates: start: 20110421
  10. PRADAXA [Concomitant]
     Dosage: 75 MG, UNK
     Route: 048
     Dates: start: 20111202
  11. KLOR-CON [Concomitant]
     Dosage: 20 MEQ, UNK
     Route: 048
     Dates: start: 20111117
  12. VENTOLIN [Concomitant]
     Dosage: 108 (90 BASE) MCG/ACT
     Dates: start: 20110218
  13. OMEPRAZOLE [Concomitant]
     Dosage: 40 MG, 1X/DAY
     Route: 048
     Dates: start: 20120313
  14. BENTYL [Concomitant]
     Dosage: 10 MG, 2X/DAY
     Route: 048
     Dates: start: 20120309
  15. SPIRIVA [Concomitant]
     Dosage: 18 UG, 1X/DAY
     Dates: start: 20120210
  16. FUROSEMIDE [Concomitant]
     Dosage: 20 MG, 1X/DAY
     Route: 048
     Dates: start: 20120307

REACTIONS (1)
  - Breast cancer metastatic [Fatal]
